FAERS Safety Report 7329070-8 (Version None)
Quarter: 2011Q1

REPORT INFORMATION
  Report Type: 
  Country: None (occurrence: None)
  Receive Date: 20110303
  Receipt Date: 20110224
  Transmission Date: 20110831
  Serious: Yes (Death, Life-Threatening)
  Sender: FDA-Public Use
  Company Number: TH-SANOFI-AVENTIS-2011SA001783

PATIENT
  Age: 54 Year
  Sex: Female
  Weight: 54.7 kg

DRUGS (10)
  1. 5-FU [Suspect]
     Route: 041
     Dates: start: 20101005, end: 20101008
  2. MAGNESIUM SULFATE [Concomitant]
     Indication: PREMEDICATION
     Route: 042
     Dates: start: 20101004, end: 20101004
  3. DOCETAXEL [Suspect]
     Route: 041
     Dates: start: 20101005, end: 20101005
  4. DEXAMETHASONE [Concomitant]
     Indication: PREMEDICATION
     Route: 042
     Dates: start: 20101004, end: 20101004
  5. LASIX [Concomitant]
     Indication: PREMEDICATION
     Route: 048
     Dates: start: 20101004, end: 20101007
  6. ONSIA [Concomitant]
     Indication: PREMEDICATION
     Route: 042
     Dates: start: 20101004, end: 20101004
  7. VALIUM [Concomitant]
     Indication: PREMEDICATION
     Dates: start: 20101004, end: 20101004
  8. MANNITOL [Concomitant]
     Indication: PREMEDICATION
     Route: 042
     Dates: start: 20101004, end: 20101004
  9. CISPLATIN [Suspect]
     Route: 042
     Dates: start: 20101005, end: 20101005
  10. RANIDINE [Concomitant]
     Indication: GASTRITIS PROPHYLAXIS
     Route: 048
     Dates: start: 20101004, end: 20101008

REACTIONS (4)
  - FEBRILE NEUTROPENIA [None]
  - HYPONATRAEMIA [None]
  - HYPOKALAEMIA [None]
  - SEPSIS [None]
